FAERS Safety Report 19997824 (Version 2)
Quarter: 2022Q1

REPORT INFORMATION
  Report Type: Report from Study
  Country: US (occurrence: US)
  Receive Date: 20211026
  Receipt Date: 20220119
  Transmission Date: 20220423
  Serious: Yes (Death, Other)
  Sender: FDA-Public Use
  Company Number: US-EXELIXIS-CABO-20035936

PATIENT
  Age: 77 Year
  Sex: Female
  Weight: 43.9 kg

DRUGS (18)
  1. CABOMETYX [Suspect]
     Active Substance: CABOZANTINIB S-MALATE
     Indication: Renal cancer
     Dosage: 20 MG, QD
     Route: 048
     Dates: start: 20200617
  2. CABOMETYX [Suspect]
     Active Substance: CABOZANTINIB S-MALATE
     Indication: Malignant neoplasm of renal pelvis
     Dosage: 40 MG, QD
     Route: 048
     Dates: start: 202104
  3. CABOMETYX [Suspect]
     Active Substance: CABOZANTINIB S-MALATE
     Indication: Uterine cancer
     Dosage: 20 MG, BID
     Route: 048
     Dates: start: 20210602
  4. CABOMETYX [Suspect]
     Active Substance: CABOZANTINIB S-MALATE
     Dosage: 40/20 MG ALTERNATING DAYS
     Route: 048
  5. PENICILLIN G POTASSIUM [Concomitant]
     Active Substance: PENICILLIN G POTASSIUM
  6. PROLIA [Concomitant]
     Active Substance: DENOSUMAB
  7. VITAMIN C [Concomitant]
     Active Substance: ASCORBIC ACID
  8. IRON [Concomitant]
     Active Substance: IRON
  9. VITAMIN D3 [Concomitant]
     Active Substance: CHOLECALCIFEROL
  10. CALCIUM [Concomitant]
     Active Substance: CALCIUM
  11. VITAMINS [Concomitant]
     Active Substance: VITAMINS
  12. HYDROCORTISONE [Concomitant]
     Active Substance: HYDROCORTISONE
  13. DIGOXIN [Concomitant]
     Active Substance: DIGOXIN
  14. LIVALO [Concomitant]
     Active Substance: PITAVASTATIN CALCIUM
  15. LOSARTAN POTASSIUM [Concomitant]
     Active Substance: LOSARTAN POTASSIUM
  16. METOPROLOL SUCCINATE [Concomitant]
     Active Substance: METOPROLOL SUCCINATE
  17. ELIQUIS [Concomitant]
     Active Substance: APIXABAN
  18. SYNTHROID [Concomitant]
     Active Substance: LEVOTHYROXINE SODIUM

REACTIONS (21)
  - Limb discomfort [Unknown]
  - Diarrhoea [Not Recovered/Not Resolved]
  - Weight decreased [Not Recovered/Not Resolved]
  - Dehydration [Unknown]
  - Death [Fatal]
  - Nasal discomfort [Unknown]
  - Rhinorrhoea [Not Recovered/Not Resolved]
  - Skin lesion [Unknown]
  - Nasal dryness [Not Recovered/Not Resolved]
  - Toothache [Not Recovered/Not Resolved]
  - Memory impairment [Not Recovered/Not Resolved]
  - Pollakiuria [Unknown]
  - Gingival swelling [Unknown]
  - Feeling abnormal [Unknown]
  - Glossodynia [Not Recovered/Not Resolved]
  - Alopecia [Unknown]
  - Decreased appetite [Not Recovered/Not Resolved]
  - Haemorrhoidal haemorrhage [Not Recovered/Not Resolved]
  - Constipation [Not Recovered/Not Resolved]
  - Stomatitis [Not Recovered/Not Resolved]
  - Asthenia [Unknown]

NARRATIVE: CASE EVENT DATE: 20210601
